FAERS Safety Report 5043521-3 (Version None)
Quarter: 2006Q2

REPORT INFORMATION
  Report Type: 
  Country: None (occurrence: None)
  Receive Date: 20060601
  Receipt Date: 20060113
  Transmission Date: 20061013
  Serious: No
  Sender: FDA-Public Use
  Company Number: 2006PV007075

PATIENT
  Age: 44 Year
  Sex: Female
  Weight: 99.7913 kg

DRUGS (5)
  1. BYETTA [Suspect]
     Indication: DIABETES MELLITUS NON-INSULIN-DEPENDENT
     Dosage: 5 MCG; BID; SC
     Route: 058
     Dates: start: 20051201
  2. GLUCOTROL [Concomitant]
  3. GLUCOPHAGE [Concomitant]
  4. AVANDIA [Concomitant]
  5. MECLIZINE [Concomitant]

REACTIONS (4)
  - NAUSEA [None]
  - VERTIGO [None]
  - VOMITING [None]
  - WEIGHT DECREASED [None]
